FAERS Safety Report 4643734-6 (Version None)
Quarter: 2005Q2

REPORT INFORMATION
  Report Type: 
  Country: None (occurrence: None)
  Receive Date: 20050425
  Receipt Date: 20050414
  Transmission Date: 20051028
  Serious: Yes (Other)
  Sender: FDA-Public Use
  Company Number: 200513334GDDC

PATIENT
  Age: 25 Year
  Sex: Male
  Weight: 93 kg

DRUGS (3)
  1. RIFAMPIN AND ISONIAZID [Suspect]
     Indication: PULMONARY TUBERCULOSIS
     Route: 048
     Dates: start: 20050115
  2. PYRIDOXINE HCL [Concomitant]
     Route: 048
     Dates: start: 20041115
  3. RIFATER [Concomitant]
     Indication: PULMONARY TUBERCULOSIS
     Dosage: DOSE: 6 TABLETS
     Route: 048
     Dates: start: 20041115, end: 20050115

REACTIONS (1)
  - CONTUSION [None]
